FAERS Safety Report 5369226-7 (Version None)
Quarter: 2007Q2

REPORT INFORMATION
  Report Type: 
  Country: None (occurrence: None)
  Receive Date: 20070625
  Receipt Date: 20070615
  Transmission Date: 20071010
  Serious: Yes (Death, Hospitalization)
  Sender: FDA-Public Use
  Company Number: HR-ELI_LILLY_AND_COMPANY-HR200706003759

PATIENT
  Age: 44 Year
  Sex: Male

DRUGS (4)
  1. OLANZAPINE [Suspect]
  2. PAROXETINE HCL [Concomitant]
  3. FLUPHENAZINE [Concomitant]
  4. HALOPERIDOL INTENSOL [Concomitant]

REACTIONS (4)
  - BRAIN OEDEMA [None]
  - HYPERGLYCAEMIA [None]
  - HYPONATRAEMIA [None]
  - PANCREATITIS HAEMORRHAGIC [None]
